FAERS Safety Report 12199283 (Version 2)
Quarter: 2016Q2

REPORT INFORMATION
  Report Type: Spontaneous
  Country: US (occurrence: US)
  Receive Date: 20160322
  Receipt Date: 20160419
  Transmission Date: 20160815
  Serious: No
  Sender: FDA-Public Use
  Company Number: US-PFIZER INC-2016114745

PATIENT
  Sex: Male

DRUGS (7)
  1. VALSARTAN AND HYDROCHLOROTHIAZIDE [Concomitant]
     Active Substance: HYDROCHLOROTHIAZIDE\VALSARTAN
     Dosage: UNK (320/25 MG)
  2. LASIX [Concomitant]
     Active Substance: FUROSEMIDE
     Dosage: 20 MG, UNK
  3. LASIX [Concomitant]
     Active Substance: FUROSEMIDE
     Dosage: 40 MG, UNK
  4. SPIRONOLACTONE. [Concomitant]
     Active Substance: SPIRONOLACTONE
     Dosage: 25 MG, UNK
     Dates: start: 2015
  5. PROCARDIA [Suspect]
     Active Substance: NIFEDIPINE
     Indication: HYPERTENSION
     Dosage: 30 MG, DAILY
  6. PROCARDIA [Suspect]
     Active Substance: NIFEDIPINE
     Dosage: 60 MG, DAILY
  7. VALSARTAN AND HYDROCHLOROTHIAZIDE [Concomitant]
     Active Substance: HYDROCHLOROTHIAZIDE\VALSARTAN
     Dosage: UNK (160/12.5 MG)

REACTIONS (6)
  - Headache [Unknown]
  - Drug ineffective [Unknown]
  - Pruritus [Unknown]
  - Burning sensation [Unknown]
  - Peripheral swelling [Unknown]
  - Hypersensitivity [Unknown]
